FAERS Safety Report 16155034 (Version 1)
Quarter: 2019Q2

REPORT INFORMATION
  Report Type: Report from Study
  Country: KR (occurrence: KR)
  Receive Date: 20190403
  Receipt Date: 20190403
  Transmission Date: 20190711
  Serious: Yes (Death, Life-Threatening)
  Sender: FDA-Public Use
  Company Number: KR-TAKEDA-2019TUS019626

PATIENT
  Age: 87 Year
  Sex: Female

DRUGS (2)
  1. CHOLINE ALFOSCERATE [Concomitant]
     Active Substance: CHOLINE ALFOSCERATE
     Indication: COGNITIVE DISORDER
     Dosage: 400 MILLIGRAM, BID
     Route: 048
     Dates: start: 20181001
  2. VORTIOXETINE. [Suspect]
     Active Substance: VORTIOXETINE
     Indication: MAJOR DEPRESSION
     Dosage: 5 MILLIGRAM, QD
     Route: 048
     Dates: start: 20181001

REACTIONS (2)
  - Pneumonia [Fatal]
  - Rectal ulcer [Fatal]

NARRATIVE: CASE EVENT DATE: 20190102
